FAERS Safety Report 6368942-8 (Version None)
Quarter: 2009Q3

REPORT INFORMATION
  Report Type: 
  Country: None (occurrence: None)
  Receive Date: 20090922
  Receipt Date: 20090908
  Transmission Date: 20100115
  Serious: Yes (Hospitalization)
  Sender: FDA-Public Use
  Company Number: US-PFIZER INC-2009268316

PATIENT
  Sex: Male
  Weight: 86.168 kg

DRUGS (7)
  1. ZOLOFT [Suspect]
     Dosage: UNK
     Dates: start: 20030101
  2. ALCOHOL [Suspect]
  3. LISINOPRIL AND HYDROCHLOROTHIAZIDE [Concomitant]
     Dosage: UNK
  4. CLONAZEPAM [Concomitant]
     Dosage: 1 MG, 2X/DAY
  5. LORAZEPAM [Concomitant]
     Dosage: 2 MG, 2X/DAY
  6. CARVEDILOL [Concomitant]
     Dosage: UNK
  7. NIFEDICAL [Concomitant]
     Dosage: UNK

REACTIONS (1)
  - ALCOHOLIC SEIZURE [None]
